FAERS Safety Report 14015487 (Version 1)
Quarter: 2017Q3

REPORT INFORMATION
  Report Type: Spontaneous
  Country: US (occurrence: US)
  Receive Date: 20170927
  Receipt Date: 20170927
  Transmission Date: 20171128
  Serious: No
  Sender: FDA-Public Use
  Company Number: US-009507513-1709USA011603

PATIENT
  Sex: Female

DRUGS (7)
  1. DARZALEX [Concomitant]
     Active Substance: DARATUMUMAB
     Dosage: UNKNOWN(STRENGTH:100MG/5M, UNK)
  2. ACETAZOLAMIDE. [Concomitant]
     Active Substance: ACETAZOLAMIDE
     Dosage: UNKNOWN(EXTENDED RELEASE)
  3. LIDOCAINE (+) PRILOCAINE [Concomitant]
     Dosage: UNKNOWN(STRENGTH:2.5-2.5%)
  4. METHYLPRED ORAL [Concomitant]
     Dosage: UNKNOWN
  5. INTRON A [Suspect]
     Active Substance: INTERFERON ALFA-2B
     Indication: PLASMA CELL MYELOMA
     Dosage: 18MIU 3ML MDV,INJECT 300,000 UNITS(0.05ML), THREE TIMES A WEEK(MONDAY,WEDNESDAY AND FRIDAY)
     Route: 023
     Dates: start: 201703
  6. ERYTHROMYCIN. [Concomitant]
     Active Substance: ERYTHROMYCIN
     Dosage: UNKNOWN(STRENGTH:5MG/GM)
  7. ACYCLOVIR. [Concomitant]
     Active Substance: ACYCLOVIR
     Dosage: UNKNOWN

REACTIONS (3)
  - Disturbance in attention [Not Recovered/Not Resolved]
  - Fatigue [Not Recovered/Not Resolved]
  - Injection site erythema [Not Recovered/Not Resolved]

NARRATIVE: CASE EVENT DATE: 2017
